FAERS Safety Report 9535049 (Version 2)
Quarter: 2013Q3

REPORT INFORMATION
  Report Type: Spontaneous
  Country: US (occurrence: US)
  Receive Date: 20130918
  Receipt Date: 20130921
  Transmission Date: 20140515
  Serious: Yes (Hospitalization)
  Sender: FDA-Public Use
  Company Number: US-ROCHE-1276530

PATIENT
  Age: 61 Year
  Sex: Male

DRUGS (5)
  1. PEG-INTERFERON ALFA 2A [Suspect]
     Indication: HEPATITIS C
     Route: 065
     Dates: start: 2000
  2. PEG-INTERFERON ALFA 2A [Suspect]
     Route: 065
     Dates: start: 201106, end: 201112
  3. RIBAVIRIN [Suspect]
     Indication: HEPATITIS C
     Route: 065
     Dates: start: 2000
  4. RIBAVIRIN [Suspect]
     Route: 065
     Dates: start: 201106, end: 201112
  5. TELAPREVIR [Suspect]
     Indication: HEPATITIS C
     Route: 065
     Dates: start: 201106, end: 201109

REACTIONS (1)
  - Myasthenia gravis [Unknown]
